FAERS Safety Report 8358844-X (Version None)
Quarter: 2012Q2

REPORT INFORMATION
  Report Type: 
  Country: None (occurrence: None)
  Receive Date: 20120515
  Receipt Date: 20120503
  Transmission Date: 20120825
  Serious: Yes (Other)
  Sender: FDA-Public Use
  Company Number: BR-AMGEN-BRASP2012028810

PATIENT
  Age: 69 Year
  Sex: Female
  Weight: 54 kg

DRUGS (1)
  1. ENBREL [Suspect]
     Indication: RHEUMATOID ARTHRITIS
     Dosage: 50 MG, ONCE WEEKLY
     Route: 058
     Dates: start: 20110801

REACTIONS (7)
  - FATIGUE [None]
  - OEDEMA PERIPHERAL [None]
  - JOINT SWELLING [None]
  - LOWER LIMB FRACTURE [None]
  - GAIT DISTURBANCE [None]
  - ACCIDENT [None]
  - FOOT FRACTURE [None]
